FAERS Safety Report 23519644 (Version 4)
Quarter: 2024Q1

REPORT INFORMATION
  Report Type: Spontaneous
  Country: US (occurrence: US)
  Receive Date: 20240213
  Receipt Date: 20240228
  Transmission Date: 20240410
  Serious: Yes (Hospitalization, Other)
  Sender: FDA-Public Use
  Company Number: US-GILEAD-2024-0661963

PATIENT

DRUGS (1)
  1. YESCARTA [Suspect]
     Active Substance: AXICABTAGENE CILOLEUCEL
     Indication: High-grade B-cell lymphoma
     Dosage: UNK, 2ND LINE
     Route: 065
     Dates: start: 20240212, end: 20240212

REACTIONS (3)
  - Neurotoxicity [Unknown]
  - Pyrexia [Unknown]
  - Wrong technique in product usage process [Recovered/Resolved]
